FAERS Safety Report 4747093-X (Version None)
Quarter: 2005Q3

REPORT INFORMATION
  Report Type: 
  Country: None (occurrence: None)
  Receive Date: 20050815
  Receipt Date: 20050803
  Transmission Date: 20060218
  Serious: Yes (Other)
  Sender: FDA-Public Use
  Company Number: HQWYE708604AUG05

PATIENT
  Age: 59 Year
  Sex: Female

DRUGS (2)
  1. PREMARIN [Suspect]
     Indication: HOT FLUSH
     Dosage: 0.3 MG SPORADICALLY, ORAL
     Route: 048
     Dates: end: 20020101
  2. EVISTA [Concomitant]

REACTIONS (1)
  - PAPILLARY SEROUS ENDOMETRIAL CARCINOMA [None]
